FAERS Safety Report 19296414 (Version 1)
Quarter: 2021Q2

REPORT INFORMATION
  Report Type: Spontaneous
  Country: CA (occurrence: CA)
  Receive Date: 20210524
  Receipt Date: 20210524
  Transmission Date: 20210717
  Serious: Yes (Hospitalization)
  Sender: FDA-Public Use
  Company Number: CA-BAUSCH-BL-2021-017897

PATIENT
  Age: 91 Year
  Sex: Female

DRUGS (1)
  1. WELLBUTRIN XL [Suspect]
     Active Substance: BUPROPION HYDROCHLORIDE
     Indication: PRODUCT USED FOR UNKNOWN INDICATION
     Dosage: EXTENDED?RELEASE
     Route: 048

REACTIONS (4)
  - Aspartate aminotransferase increased [Unknown]
  - Acute generalised exanthematous pustulosis [Unknown]
  - Hepatitis [Unknown]
  - Rash [Unknown]
